FAERS Safety Report 6365386-X (Version None)
Quarter: 2009Q3

REPORT INFORMATION
  Report Type: 
  Country: None (occurrence: None)
  Receive Date: 20090919
  Receipt Date: 20090812
  Transmission Date: 20100115
  Serious: No
  Sender: FDA-Public Use
  Company Number: US-ABBOTT-09P-163-0591033-00

PATIENT
  Sex: Female
  Weight: 77.18 kg

DRUGS (2)
  1. HUMIRA [Suspect]
     Indication: CROHN'S DISEASE
     Dates: start: 20090728
  2. HUMIRA [Suspect]
     Dosage: 80MG DAY 15
     Dates: start: 20090811, end: 20090811

REACTIONS (7)
  - CONTUSION [None]
  - JOINT SWELLING [None]
  - LABYRINTHITIS [None]
  - OTITIS EXTERNA [None]
  - PAIN [None]
  - PAIN IN EXTREMITY [None]
  - PERIPHERAL COLDNESS [None]
